FAERS Safety Report 18014188 (Version 1)
Quarter: 2020Q3

REPORT INFORMATION
  Report Type: Spontaneous
  Country: US (occurrence: US)
  Receive Date: 20200713
  Receipt Date: 20200713
  Transmission Date: 20201103
  Serious: Yes (Death)
  Sender: FDA-Public Use
  Company Number: None

PATIENT
  Age: 68 Year
  Sex: Female
  Weight: 80 kg

DRUGS (16)
  1. ALBUTEROL HFA [Concomitant]
     Active Substance: ALBUTEROL SULFATE
     Dates: start: 20200706, end: 20200710
  2. ASCORBIC ACID 500MG TAB [Concomitant]
     Dates: start: 20200705, end: 20200710
  3. FAMOTIDINE 20MG INJ [Concomitant]
     Dates: start: 20200705, end: 20200710
  4. CEFTRIAXONE. [Concomitant]
     Active Substance: CEFTRIAXONE
     Dates: start: 20200705, end: 20200709
  5. PROPOFOL DRIP 1000MG/100ML [Concomitant]
     Dates: start: 20200708, end: 20200710
  6. NITROGLYCERIN 0.4MG S/L TAB [Concomitant]
     Dates: start: 20200708, end: 20200708
  7. ZINC SULFATE. [Concomitant]
     Active Substance: ZINC SULFATE
     Dates: start: 20200706, end: 20200710
  8. VASOPRESSIN DRIP 20 UNITS/100ML [Concomitant]
     Dates: start: 20200708, end: 20200710
  9. ENOXAPARIN 80MG INJ [Concomitant]
     Dates: start: 20200707, end: 20200709
  10. FENTANYL DRIP 20 MCG/ML [Concomitant]
     Dates: start: 20200708, end: 20200710
  11. NOREPINEPHRINE DRIP 8MG/250ML [Concomitant]
     Dates: start: 20200708, end: 20200710
  12. DOXYCYCLINE 100MG CAP [Concomitant]
     Dates: start: 20200707, end: 20200709
  13. REMDESIVIR. [Suspect]
     Active Substance: REMDESIVIR
     Indication: SARS-COV-2 TEST POSITIVE
     Dosage: ?          OTHER FREQUENCY:ONCE;?
     Route: 040
     Dates: start: 20200708, end: 20200709
  14. VITAMIN D3 5000UNITS CAP [Concomitant]
     Dates: start: 20200706, end: 20200710
  15. NOVOLOG 100UNITS/ML SLIDING SCALE [Concomitant]
     Dates: start: 20200706, end: 20200710
  16. LEVEMIR [Concomitant]
     Active Substance: INSULIN DETEMIR
     Dates: start: 20200707, end: 20200710

REACTIONS (4)
  - Blood creatinine increased [None]
  - Alanine aminotransferase increased [None]
  - Pulseless electrical activity [None]
  - Cardio-respiratory arrest [None]

NARRATIVE: CASE EVENT DATE: 20200709
